FAERS Safety Report 6849526-1 (Version None)
Quarter: 2010Q3

REPORT INFORMATION
  Report Type: 
  Country: None (occurrence: None)
  Receive Date: 20100716
  Receipt Date: 20070926
  Transmission Date: 20110219
  Serious: No
  Sender: FDA-Public Use
  Company Number: US-PFIZER INC-2007083346

PATIENT
  Sex: Female

DRUGS (3)
  1. CHANTIX [Suspect]
  2. ALBUTEROL [Concomitant]
     Route: 055
  3. SERETIDE MITE [Concomitant]
     Route: 055

REACTIONS (1)
  - AGGRESSION [None]
